FAERS Safety Report 8849300 (Version 2)
Quarter: 2013Q1

REPORT INFORMATION
  Report Type: Spontaneous
  Country: US (occurrence: US)
  Receive Date: 20121019
  Receipt Date: 20130102
  Transmission Date: 20140127
  Serious: Yes (Other)
  Sender: FDA-Public Use
  Company Number: PHEH2012US020534

PATIENT
  Age: 59 Year
  Sex: Female

DRUGS (5)
  1. DIOVAN [Suspect]
     Indication: HYPERTENSION
     Dosage: 80 MG, DAILY
     Route: 048
     Dates: start: 20061011
  2. ACTOS [Concomitant]
     Indication: DIABETES MELLITUS
  3. PAXIL [Concomitant]
     Indication: OBSESSIVE-COMPULSIVE DISORDER
  4. DYAZIDE [Concomitant]
     Indication: POLYURIA
  5. MODURETIC [Concomitant]
     Indication: POLYURIA

REACTIONS (1)
  - Road traffic accident [Unknown]
